FAERS Safety Report 6419286-7 (Version None)
Quarter: 2009Q4

REPORT INFORMATION
  Report Type: 
  Country: None (occurrence: None)
  Receive Date: 20091029
  Receipt Date: 20091026
  Transmission Date: 20100525
  Serious: Yes (Death, Life-Threatening, Hospitalization)
  Sender: FDA-Public Use
  Company Number: CZ-BRISTOL-MYERS SQUIBB COMPANY-14738926

PATIENT
  Age: 55 Year
  Sex: Female

DRUGS (3)
  1. DASATINIB [Suspect]
     Indication: CHRONIC MYELOID LEUKAEMIA
     Dosage: INTERRUPTED ON 07AUG09
     Route: 048
     Dates: start: 20080918, end: 20090807
  2. BETAXOLOL [Concomitant]
     Indication: HYPERTENSION
  3. LOSARTAN [Concomitant]
     Indication: HYPERTENSION

REACTIONS (2)
  - CARDIAC ARREST [None]
  - SEPSIS [None]
